FAERS Safety Report 4390470-X (Version None)
Quarter: 2004Q2

REPORT INFORMATION
  Report Type: 
  Country: None (occurrence: None)
  Receive Date: 20040630
  Receipt Date: 20040610
  Transmission Date: 20050107
  Serious: Yes (Hospitalization)
  Sender: FDA-Public Use
  Company Number: PHEH2004US05283

PATIENT
  Age: 80 Year
  Sex: Female
  Weight: 66.6788 kg

DRUGS (16)
  1. VISUDYNE [Suspect]
     Indication: MACULAR DEGENERATION
     Dosage: 2 MG/ML ONCE IV
     Route: 042
     Dates: start: 20040511, end: 20040511
  2. PREMARIN [Concomitant]
  3. LEVOXYL [Concomitant]
  4. TOPRAL [Concomitant]
  5. LASIX [Concomitant]
  6. DIGOXIN [Concomitant]
  7. ASPIRINA INFANTIL [Concomitant]
  8. CELECOXIB [Concomitant]
  9. COUMADIN [Concomitant]
  10. PRILOSEC [Concomitant]
  11. LIPITOR [Concomitant]
  12. LISINOPRIL [Concomitant]
  13. FIBERCON [Concomitant]
  14. BENADRYL [Concomitant]
  15. POTASSIUM CHLORIDE [Concomitant]
  16. ANTIOXIDENT [Concomitant]

REACTIONS (4)
  - ANAPHYLACTIC REACTION [None]
  - ANGIONEUROTIC OEDEMA [None]
  - INFUSION RELATED REACTION [None]
  - URINE LEUKOCYTE ESTERASE POSITIVE [None]
